FAERS Safety Report 18579702 (Version 1)
Quarter: 2020Q4

REPORT INFORMATION
  Report Type: Spontaneous
  Country: US (occurrence: US)
  Receive Date: 20201204
  Receipt Date: 20201204
  Transmission Date: 20210114
  Serious: Yes (Other)
  Sender: FDA-Public Use
  Company Number: US-009507513-2011USA015895

PATIENT
  Age: 67 Year
  Sex: Female
  Weight: 54.9 kg

DRUGS (9)
  1. METOPROLOL TARTRATE. [Concomitant]
     Active Substance: METOPROLOL TARTRATE
     Indication: BLOOD PRESSURE MEASUREMENT
     Dosage: UNK
     Dates: end: 201302
  2. PRILOSEC [Suspect]
     Active Substance: OMEPRAZOLE MAGNESIUM
     Indication: ULCER
     Dosage: UNK
     Route: 048
     Dates: start: 201212, end: 201212
  3. BRILINTA [Suspect]
     Active Substance: TICAGRELOR
     Indication: STENT PLACEMENT
     Route: 048
     Dates: start: 201301
  4. BRILINTA [Suspect]
     Active Substance: TICAGRELOR
     Indication: MYOCARDIAL INFARCTION
     Dosage: 180 MILLIGRAM, QD
     Route: 048
     Dates: start: 201301
  5. ASPIRIN. [Concomitant]
     Active Substance: ASPIRIN
     Indication: MYOCARDIAL INFARCTION
     Dosage: 80 MILLIGRAM, QD
     Route: 048
     Dates: start: 201301
  6. ASPIRIN. [Concomitant]
     Active Substance: ASPIRIN
     Indication: STENT PLACEMENT
     Dosage: 80 MILLIGRAM, QD
     Route: 048
     Dates: start: 201301
  7. ZOCOR [Concomitant]
     Active Substance: SIMVASTATIN
     Dosage: GENERIC
     Dates: end: 201302
  8. PRINIVIL [Suspect]
     Active Substance: LISINOPRIL
     Indication: HYPERTENSION
     Dosage: 2.5 MILLIGRAM, QD
     Route: 048
     Dates: start: 201301
  9. PROTONIX [Concomitant]
     Active Substance: PANTOPRAZOLE SODIUM
     Indication: ULCER
     Dosage: 40 MILLIGRAM, QD
     Route: 048
     Dates: start: 201212

REACTIONS (8)
  - Haemorrhage [Recovered/Resolved]
  - Atrial fibrillation [Unknown]
  - Back pain [Not Recovered/Not Resolved]
  - Fatigue [Not Recovered/Not Resolved]
  - Myocardial infarction [Recovered/Resolved]
  - Urticaria [Not Recovered/Not Resolved]
  - Adverse event [Recovered/Resolved]
  - Dizziness [Recovered/Resolved]

NARRATIVE: CASE EVENT DATE: 201301
